FAERS Safety Report 20469760 (Version 1)
Quarter: 2022Q1

REPORT INFORMATION
  Report Type: Spontaneous
  Country: US (occurrence: None)
  Receive Date: 20220213
  Receipt Date: 20220213
  Transmission Date: 20220423
  Serious: Yes (Other)
  Sender: FDA-Public Use
  Company Number: None

PATIENT
  Age: 64 Year
  Sex: Female
  Weight: 87.75 kg

DRUGS (1)
  1. SUPREP BOWEL PREP [Suspect]
     Active Substance: MAGNESIUM SULFATE\POTASSIUM SULFATE\SODIUM SULFATE
     Indication: Colonoscopy
     Dosage: OTHER QUANTITY : 6 OUNCE(S);?
     Route: 048
     Dates: start: 20220209, end: 20220210

REACTIONS (2)
  - Vomiting [None]
  - Dehydration [None]

NARRATIVE: CASE EVENT DATE: 20220209
